FAERS Safety Report 14148876 (Version 1)
Quarter: 2017Q4

REPORT INFORMATION
  Report Type: Spontaneous
  Country: IN (occurrence: IN)
  Receive Date: 20171101
  Receipt Date: 20171101
  Transmission Date: 20180321
  Serious: Yes (Death, Hospitalization)
  Sender: FDA-Public Use
  Company Number: IN-PFIZER INC-2017466008

PATIENT
  Age: 57 Year
  Sex: Female

DRUGS (1)
  1. AROMASIN [Suspect]
     Active Substance: EXEMESTANE
     Indication: BREAST CANCER METASTATIC
     Dosage: 25 MG, UNK
     Route: 048
     Dates: start: 201508, end: 20171006

REACTIONS (5)
  - Death [Fatal]
  - Dizziness [Unknown]
  - Lung infection [Unknown]
  - Vomiting [Unknown]
  - Expired product administered [Unknown]

NARRATIVE: CASE EVENT DATE: 20171006
